FAERS Safety Report 8816363 (Version 1)
Quarter: 2012Q4

REPORT INFORMATION
  Report Type: Spontaneous
  Country: US (occurrence: None)
  Receive Date: 20120927
  Receipt Date: 20120927
  Transmission Date: 20130627
  Serious: No
  Sender: FDA-Public Use
  Company Number: None

PATIENT
  Age: 20 Year
  Sex: Female
  Weight: 97.52 kg

DRUGS (1)
  1. MIRENA [Suspect]
     Indication: BIRTH CONTROL
     Dosage: 20mcg/day Every 5 Years intra-uterine
     Route: 015
     Dates: start: 20091001, end: 20110415

REACTIONS (7)
  - Medical device pain [None]
  - Device dislocation [None]
  - Headache [None]
  - Abdominal pain [None]
  - Maternal exposure before pregnancy [None]
  - Pregnancy [None]
  - Abortion spontaneous [None]
